FAERS Safety Report 9469387 (Version 4)
Quarter: 2013Q3

REPORT INFORMATION
  Report Type: Spontaneous
  Country: US (occurrence: US)
  Receive Date: 20130821
  Receipt Date: 20130906
  Transmission Date: 20140515
  Serious: No
  Sender: FDA-Public Use
  Company Number: US-009507513-1308USA007883

PATIENT
  Age: 44 Year
  Sex: Female

DRUGS (4)
  1. PROVENTIL [Suspect]
     Indication: CHRONIC OBSTRUCTIVE PULMONARY DISEASE
     Dosage: 2 PUFFS EVERY 6 HOURS AS NEEDED
     Route: 055
     Dates: start: 201108
  2. VENTOLIN (ALBUTEROL SULFATE) [Concomitant]
  3. ZOCOR [Concomitant]
  4. PAXIL [Concomitant]

REACTIONS (3)
  - Dyspnoea [Recovered/Resolved]
  - Product quality issue [Unknown]
  - Drug dose omission [Unknown]
